FAERS Safety Report 9332899 (Version 1)
Quarter: 2013Q2

REPORT INFORMATION
  Report Type: Report from Study
  Country: CN (occurrence: CN)
  Receive Date: 20130606
  Receipt Date: 20130606
  Transmission Date: 20140414
  Serious: Yes (Death)
  Sender: FDA-Public Use
  Company Number: CN-SANOFI-AVENTIS-2013SA057006

PATIENT
  Sex: 0

DRUGS (3)
  1. DOPAMINE HYDROCHLORIDE [Suspect]
     Indication: VASOCONSTRICTION
     Dosage: DOSE: 1.25-20 MCG/(KG.MIN)
     Route: 065
  2. MILRINONE [Suspect]
     Indication: VASOCONSTRICTION
     Dosage: INITIAL DOSE
     Route: 065
  3. MILRINONE [Suspect]
     Indication: VASOCONSTRICTION
     Dosage: MAINTENANCE DOSE: 0.25-0.75 MCG/(KG.MIN)
     Route: 065

REACTIONS (2)
  - Hypotension [Fatal]
  - Treatment failure [Fatal]
